FAERS Safety Report 18082398 (Version 1)
Quarter: 2020Q3

REPORT INFORMATION
  Report Type: Spontaneous
  Country: ES (occurrence: ES)
  Receive Date: 20200728
  Receipt Date: 20200728
  Transmission Date: 20201103
  Serious: Yes (Other)
  Sender: FDA-Public Use
  Company Number: NVSC2020ES210037

PATIENT
  Age: 70 Year
  Sex: Male

DRUGS (6)
  1. OPTAVA (CARMELLOSE SODIUM) [Suspect]
     Active Substance: CARBOXYMETHYLCELLULOSE SODIUM
     Indication: EYE LUBRICATION THERAPY
     Dosage: UNK
     Route: 047
  2. HYABAK [Suspect]
     Active Substance: HYALURONATE SODIUM
     Indication: EYE LUBRICATION THERAPY
     Dosage: UNK
     Route: 047
  3. HYDROCORTISONE SODIUM PHOSPHATE [Suspect]
     Active Substance: HYDROCORTISONE SODIUM PHOSPHATE
     Indication: BLEPHARITIS
     Dosage: 2 GTT, QD (NEXT 5 DAYS)
     Route: 047
  4. HYDROCORTISONE SODIUM PHOSPHATE [Suspect]
     Active Substance: HYDROCORTISONE SODIUM PHOSPHATE
     Dosage: 1 GTT, QD (NEXT 4 DAYS)
     Route: 047
  5. HYDROCORTISONE SODIUM PHOSPHATE [Suspect]
     Active Substance: HYDROCORTISONE SODIUM PHOSPHATE
     Dosage: 3 GTT, QD (FIRST 5 DAYS)
     Route: 047
  6. AZITHROMYCIN DIHYDRATE. [Suspect]
     Active Substance: AZITHROMYCIN DIHYDRATE
     Indication: BLEPHARITIS
     Dosage: 2 GTT, QD (EYE DROPS, SOLUTION IN SINGLE?DOSE CONTAINER)
     Route: 047

REACTIONS (2)
  - Product use in unapproved indication [Unknown]
  - Blindness [Unknown]
